FAERS Safety Report 11701700 (Version 1)
Quarter: 2015Q4

REPORT INFORMATION
  Report Type: Spontaneous
  Country: US (occurrence: US)
  Receive Date: 20151105
  Receipt Date: 20151105
  Transmission Date: 20160304
  Serious: No
  Sender: FDA-Public Use
  Company Number: US-MALLINCKRODT-T201502515

PATIENT
  Age: 85 Year
  Sex: Female
  Weight: 68 kg

DRUGS (1)
  1. FENTANYL TRANSDERMAL SYSTEM [Suspect]
     Active Substance: FENTANYL
     Indication: PAIN
     Dosage: 50 UG/HR, Q3DAYS
     Route: 062
     Dates: start: 20150331

REACTIONS (5)
  - Muscle spasms [Not Recovered/Not Resolved]
  - Anxiety [Unknown]
  - Peripheral swelling [Not Recovered/Not Resolved]
  - Wrong technique in product usage process [Unknown]
  - Pollakiuria [Not Recovered/Not Resolved]

NARRATIVE: CASE EVENT DATE: 20150428
